FAERS Safety Report 26032153 (Version 2)
Quarter: 2025Q4

REPORT INFORMATION
  Report Type: Report from Study
  Country: US (occurrence: None)
  Receive Date: 20251112
  Receipt Date: 20251129
  Transmission Date: 20260117
  Serious: Yes (Hospitalization)
  Sender: UCB
  Company Number: US-UCBSA-2025070305

PATIENT

DRUGS (1)
  1. BIMEKIZUMAB [Suspect]
     Active Substance: BIMEKIZUMAB
     Indication: Psoriasis
     Dosage: 320 MILLIGRAM, EV 8 WEEKS

REACTIONS (4)
  - Carotid artery occlusion [Recovered/Resolved]
  - Arterial therapeutic procedure [Recovered/Resolved]
  - Psoriasis [Recovering/Resolving]
  - Intentional dose omission [Unknown]
